FAERS Safety Report 15942465 (Version 1)
Quarter: 2019Q1

REPORT INFORMATION
  Report Type: Spontaneous
  Country: DE (occurrence: DE)
  Receive Date: 20190210
  Receipt Date: 20190210
  Transmission Date: 20190417
  Serious: Yes (Other)
  Sender: FDA-Public Use
  Company Number: PHHY2019DE029028

PATIENT
  Sex: Female

DRUGS (1)
  1. CLARITHROMYCIN HEXAL [Suspect]
     Active Substance: CLARITHROMYCIN
     Indication: PRODUCT USED FOR UNKNOWN INDICATION
     Dosage: UNK, BID
     Route: 048
     Dates: start: 20190203, end: 20190204

REACTIONS (3)
  - Angina pectoris [Unknown]
  - Heart rate decreased [Unknown]
  - Palpitations [Unknown]
